FAERS Safety Report 15713166 (Version 1)
Quarter: 2018Q4

REPORT INFORMATION
  Report Type: Report from Study
  Country: US (occurrence: US)
  Receive Date: 20181212
  Receipt Date: 20181212
  Transmission Date: 20190205
  Serious: Yes (Hospitalization, Other)
  Sender: FDA-Public Use
  Company Number: US-BRISTOL-MYERS SQUIBB COMPANY-BMS-2018-108318

PATIENT
  Age: 75 Year
  Sex: Female
  Weight: 47.3 kg

DRUGS (2)
  1. NIVOLUMAB [Suspect]
     Active Substance: NIVOLUMAB
     Indication: ADENOID CYSTIC CARCINOMA
     Dosage: 3 MG/KG, Q2WK
     Route: 042
     Dates: start: 20180424, end: 20181121
  2. IPILIMUMAB [Suspect]
     Active Substance: IPILIMUMAB
     Indication: ADENOID CYSTIC CARCINOMA
     Dosage: 1 MG/KG, Q6WK
     Route: 042
     Dates: start: 20180424, end: 20181121

REACTIONS (4)
  - Nausea [Unknown]
  - Malaise [Unknown]
  - Failure to thrive [Unknown]
  - Osteomyelitis [Recovering/Resolving]

NARRATIVE: CASE EVENT DATE: 20181110
